FAERS Safety Report 15262849 (Version 1)
Quarter: 2018Q3

REPORT INFORMATION
  Report Type: Spontaneous
  Country: IT (occurrence: IT)
  Receive Date: 20180810
  Receipt Date: 20180810
  Transmission Date: 20181010
  Serious: Yes (Other)
  Sender: FDA-Public Use
  Company Number: IT-AUROBINDO-AUR-APL-2018-040634

PATIENT

DRUGS (4)
  1. AULIN [Suspect]
     Active Substance: NIMESULIDE
     Indication: PAIN
     Dosage: IN TOTAL
     Route: 048
     Dates: start: 20180607, end: 20180607
  2. AMOXICILLIN. [Suspect]
     Active Substance: AMOXICILLIN
     Indication: ANTIBIOTIC PROPHYLAXIS
     Dosage: IN TOTAL
     Route: 048
     Dates: start: 20180607, end: 20180607
  3. AULIN [Suspect]
     Active Substance: NIMESULIDE
     Indication: PAIN
  4. AMOXICILLIN. [Suspect]
     Active Substance: AMOXICILLIN
     Indication: ANTIBIOTIC PROPHYLAXIS

REACTIONS (3)
  - Pruritus generalised [Recovering/Resolving]
  - Angioedema [Recovering/Resolving]
  - Dyspnoea [Recovering/Resolving]

NARRATIVE: CASE EVENT DATE: 20180607
